FAERS Safety Report 25591447 (Version 1)
Quarter: 2025Q3

REPORT INFORMATION
  Report Type: Spontaneous
  Country: US (occurrence: None)
  Receive Date: 20250722
  Receipt Date: 20250722
  Transmission Date: 20251021
  Serious: Yes (Hospitalization)
  Sender: FDA-CTU
  Company Number: None

PATIENT
  Sex: Female

DRUGS (11)
  1. LENALIDOMIDE [Suspect]
     Active Substance: LENALIDOMIDE
     Indication: Plasma cell myeloma
     Dates: start: 20250306
  2. ALBUTEROL AER HFA [Concomitant]
  3. AMLODIPINE [Concomitant]
     Active Substance: AMLODIPINE BESYLATE
  4. ASMAN EX 60 AER 220MCG [Concomitant]
  5. ASPIRIN 81 TAB 81 MG EC [Concomitant]
  6. ASPIRIN 81 TAB 81 MG EC [Concomitant]
  7. DEXAMETHASONE [Concomitant]
     Active Substance: DEXAMETHASONE
  8. EUFLEXXA INJ [Concomitant]
  9. FERROUS SULF TAB 325MG [Concomitant]
  10. FUROSEMIDE TAB [Concomitant]
  11. MONTELUKAST SODIUM [Concomitant]
     Active Substance: MONTELUKAST SODIUM

REACTIONS (1)
  - Gastrointestinal disorder [None]
